FAERS Safety Report 25312118 (Version 2)
Quarter: 2025Q2

REPORT INFORMATION
  Report Type: Spontaneous
  Country: US (occurrence: US)
  Receive Date: 20250510
  Receipt Date: 20250526
  Transmission Date: 20250717
  Serious: Yes (Other)
  Sender: NOVO NORDISK
  Company Number: US-NOVOPROD-1408533

PATIENT
  Sex: Female

DRUGS (2)
  1. OZEMPIC [Suspect]
     Active Substance: SEMAGLUTIDE
     Indication: Type 2 diabetes mellitus
     Dates: start: 20241121
  2. NOVOLIN R [Suspect]
     Active Substance: INSULIN HUMAN
     Indication: Type 2 diabetes mellitus
     Dates: start: 2022

REACTIONS (14)
  - Fall [Unknown]
  - Muscle strain [Recovered/Resolved]
  - Bone contusion [Recovered/Resolved]
  - Urinary tract infection [Not Recovered/Not Resolved]
  - Renal disorder [Unknown]
  - Poor peripheral circulation [Not Recovered/Not Resolved]
  - Depression [Unknown]
  - Food craving [Unknown]
  - Eye pain [Unknown]
  - Blood glucose fluctuation [Recovering/Resolving]
  - Glycosylated haemoglobin increased [Unknown]
  - Blood glucose increased [Not Recovered/Not Resolved]
  - Constipation [Not Recovered/Not Resolved]
  - Drug ineffective [Unknown]

NARRATIVE: CASE EVENT DATE: 20250207
